FAERS Safety Report 4413926-X (Version None)
Quarter: 2004Q3

REPORT INFORMATION
  Report Type: 
  Country: None (occurrence: None)
  Receive Date: 20040803
  Receipt Date: 20040209
  Transmission Date: 20050211
  Serious: Yes (Hospitalization)
  Sender: FDA-Public Use
  Company Number: FR-ROCHE-358408

PATIENT
  Age: 9 Month
  Sex: Male
  Weight: 10 kg

DRUGS (4)
  1. ROCEPHIN [Suspect]
     Indication: DRUG USE FOR UNKNOWN INDICATION
     Route: 042
  2. ROCEPHIN [Suspect]
     Dosage: DESCRIBED AS  FROM DAY 4 TO DAY 9.
     Route: 042
  3. AMIKACIN [Suspect]
     Indication: DRUG USE FOR UNKNOWN INDICATION
     Route: 042
  4. CALCIUM [Concomitant]
     Dosage: DRUG DESCRIBED AS B27 + CALCIUM.
     Route: 041

REACTIONS (4)
  - FLUSHING [None]
  - MYOCLONUS [None]
  - NYSTAGMUS [None]
  - TREMOR [None]
